FAERS Safety Report 17842561 (Version 1)
Quarter: 2020Q2

REPORT INFORMATION
  Report Type: Spontaneous
  Country: US (occurrence: US)
  Receive Date: 20200529
  Receipt Date: 20200529
  Transmission Date: 20200714
  Serious: Yes (Hospitalization, Other)
  Sender: FDA-Public Use
  Company Number: US-ABBVIE-20K-163-3418945-00

PATIENT
  Sex: Male
  Weight: 77.18 kg

DRUGS (3)
  1. PANTOPRAZOLE [Concomitant]
     Active Substance: PANTOPRAZOLE
     Indication: ULCER
  2. MELOXICAM. [Concomitant]
     Active Substance: MELOXICAM
     Indication: PAIN
  3. CREON [Suspect]
     Active Substance: PANCRELIPASE AMYLASE\PANCRELIPASE LIPASE\PANCRELIPASE PROTEASE
     Indication: PANCREATIC CARCINOMA
     Dosage: 2 PILLS WITH EVERY MEAL AND 1 PILL WITH NIGHT SNACK
     Route: 048
     Dates: start: 2018

REACTIONS (2)
  - Cataract [Recovering/Resolving]
  - Abdominal distension [Recovered/Resolved]

NARRATIVE: CASE EVENT DATE: 2018
